FAERS Safety Report 14441099 (Version 4)
Quarter: 2019Q1

REPORT INFORMATION
  Report Type: Report from Study
  Country: CH (occurrence: CH)
  Receive Date: 20180125
  Receipt Date: 20190307
  Transmission Date: 20190417
  Serious: Yes (Death, Life-Threatening, Hospitalization, Other)
  Sender: FDA-Public Use
  Company Number: CH-TEVA-2018-CH-850441

PATIENT
  Age: 81 Year
  Sex: Male
  Weight: 70.5 kg

DRUGS (2)
  1. CARBOPLATIN-TEVA [Suspect]
     Active Substance: CARBOPLATIN
     Indication: PROSTATE CANCER METASTATIC
     Dosage: DOSE REGIMEN 250MG -270MG WEEKLY
     Route: 042
     Dates: start: 20171222, end: 20180104
  2. ASPIRIN. [Suspect]
     Active Substance: ASPIRIN
     Indication: TRANSIENT ISCHAEMIC ATTACK
     Dosage: 100 MILLIGRAM DAILY;
     Route: 048
     Dates: start: 20160710, end: 20180111

REACTIONS (2)
  - Renal failure [Fatal]
  - Thrombocytopenia [Not Recovered/Not Resolved]

NARRATIVE: CASE EVENT DATE: 20180114
